FAERS Safety Report 24358546 (Version 2)
Quarter: 2024Q3

REPORT INFORMATION
  Report Type: Spontaneous
  Country: ES (occurrence: ES)
  Receive Date: 20240924
  Receipt Date: 20240925
  Transmission Date: 20241017
  Serious: Yes (Death, Other)
  Sender: MERCK
  Company Number: ES-009507513-2409ESP008256

PATIENT
  Age: 50 Year
  Sex: Male

DRUGS (2)
  1. RECARBRIO [Suspect]
     Active Substance: CILASTATIN\IMIPENEM ANHYDROUS\RELEBACTAM ANHYDROUS
     Indication: Abdominal infection
     Dosage: UNK
     Dates: start: 20240806
  2. COLISTIN [Concomitant]
     Active Substance: COLISTIN
     Indication: Abdominal infection

REACTIONS (1)
  - Encephalopathy [Fatal]

NARRATIVE: CASE EVENT DATE: 20240811
